FAERS Safety Report 15566374 (Version 1)
Quarter: 2018Q4

REPORT INFORMATION
  Report Type: Spontaneous
  Country: ES (occurrence: ES)
  Receive Date: 20181030
  Receipt Date: 20181030
  Transmission Date: 20190205
  Serious: Yes (Hospitalization)
  Sender: FDA-Public Use
  Company Number: PHHY2018ES140757

PATIENT
  Age: 31 Year
  Sex: Male

DRUGS (2)
  1. ACENOCUMAROL [Interacting]
     Active Substance: ACENOCOUMAROL
     Indication: PULMONARY EMBOLISM
     Dosage: UNK
     Route: 048
  2. LEVOFLOXACIN. [Suspect]
     Active Substance: LEVOFLOXACIN
     Indication: PRODUCT USED FOR UNKNOWN INDICATION
     Dosage: 500 MG, Q12H
     Route: 001
     Dates: start: 20180508, end: 20180517

REACTIONS (1)
  - Haemoptysis [Recovered/Resolved]

NARRATIVE: CASE EVENT DATE: 20180517
